FAERS Safety Report 24707004 (Version 2)
Quarter: 2025Q1

REPORT INFORMATION
  Report Type: Spontaneous
  Country: US (occurrence: US)
  Receive Date: 20241206
  Receipt Date: 20250106
  Transmission Date: 20250408
  Serious: Yes (Hospitalization, Other)
  Sender: PFIZER
  Company Number: US-PFIZER INC-PV202400158718

PATIENT
  Age: 94 Year
  Sex: Female

DRUGS (1)
  1. PREMARIN [Suspect]
     Active Substance: ESTROGENS, CONJUGATED

REACTIONS (3)
  - Intestinal obstruction [Recovered/Resolved]
  - Oropharyngeal discomfort [Recovered/Resolved]
  - Dysphonia [Recovered/Resolved]
